FAERS Safety Report 22307449 (Version 1)
Quarter: 2023Q2

REPORT INFORMATION
  Report Type: Spontaneous
  Country: CN (occurrence: None)
  Receive Date: 20230511
  Receipt Date: 20230511
  Transmission Date: 20230721
  Serious: Yes (Disabling)
  Sender: FDA-Public Use
  Company Number: CN-ROCHE-3347478

PATIENT
  Age: 50 Year
  Sex: Female
  Weight: 51.5 kg

DRUGS (6)
  1. GIMERACIL\OTERACIL\TEGAFUR [Suspect]
     Active Substance: GIMERACIL\OTERACIL\OTERACIL POTASSIUM\TEGAFUR
     Indication: Vaginal adenocarcinoma
     Route: 048
     Dates: start: 20230426
  2. GIMERACIL\OTERACIL\TEGAFUR [Suspect]
     Active Substance: GIMERACIL\OTERACIL\OTERACIL POTASSIUM\TEGAFUR
     Route: 048
     Dates: start: 20230426
  3. IRINOTECAN [Suspect]
     Active Substance: IRINOTECAN
     Indication: Vaginal adenocarcinoma
     Route: 041
     Dates: start: 20230426
  4. AVASTIN [Suspect]
     Active Substance: BEVACIZUMAB
     Indication: Vaginal adenocarcinoma
     Route: 041
     Dates: start: 20230426
  5. SODIUM CHLORIDE [Concomitant]
     Active Substance: SODIUM CHLORIDE
     Route: 041
     Dates: start: 20230426, end: 20230426
  6. SODIUM CHLORIDE [Concomitant]
     Active Substance: SODIUM CHLORIDE
     Route: 041
     Dates: start: 20230426, end: 20230426

REACTIONS (3)
  - White blood cell count decreased [Unknown]
  - Granulocyte count decreased [Unknown]
  - Intentional product use issue [Unknown]

NARRATIVE: CASE EVENT DATE: 20230505
